FAERS Safety Report 6454400-9 (Version None)
Quarter: 2009Q4

REPORT INFORMATION
  Report Type: 
  Country: None (occurrence: None)
  Receive Date: 20091117
  Receipt Date: 20091102
  Transmission Date: 20100525
  Serious: Yes (Other)
  Sender: FDA-Public Use
  Company Number: 8053520

PATIENT
  Age: 24 Year
  Sex: Male
  Weight: 102 kg

DRUGS (22)
  1. KEPPRA [Suspect]
     Indication: CONVULSION
     Dosage: 5000 MG 1/D PO
     Route: 048
     Dates: start: 20091030, end: 20091031
  2. KEPPRA [Suspect]
  3. KEPPRA [Suspect]
     Indication: CONVULSION
     Dosage: 4875 MG 1/D PO
     Route: 048
     Dates: start: 20091028, end: 20091029
  4. KEPPRA [Suspect]
     Indication: CONVULSION
     Dosage: 1500 MG 1/D PO
     Route: 048
     Dates: start: 20091102
  5. KEPPRA [Suspect]
     Indication: CONVULSION
     Dosage: 1000 MG 1/D PO
     Route: 048
     Dates: start: 20091102
  6. KEPPRA [Suspect]
     Indication: CONVULSION
     Dosage: 1750 MG 1/D PO
     Route: 048
     Dates: start: 20091102
  7. KEPPRA [Suspect]
     Indication: CONVULSION
     Dosage: 750 MG 1/D PO
     Route: 048
     Dates: start: 20091102
  8. KEPPRA [Suspect]
     Indication: CONVULSION
     Dosage: 1500 MG 1/D PO
     Route: 048
     Dates: start: 20090702, end: 20091028
  9. KEPPRA [Suspect]
     Indication: CONVULSION
     Dosage: 1000 MG 1/D PO
     Route: 048
     Dates: start: 20090702, end: 20091028
  10. KEPPRA [Suspect]
     Indication: CONVULSION
     Dosage: 1750 MG 1/D PO
     Route: 048
     Dates: start: 20090702, end: 20091028
  11. KEPPRA [Suspect]
     Indication: CONVULSION
     Dosage: 750 MG 1/D PO
     Route: 048
     Dates: start: 20090702, end: 20091028
  12. KEPPRA [Suspect]
     Indication: CONVULSION
     Dosage: 1500 MG 1/D PO
     Route: 048
     Dates: start: 20030701, end: 20090101
  13. KEPPRA [Suspect]
     Indication: CONVULSION
     Dosage: 1000 MG 1/D PO
     Route: 048
     Dates: start: 20030701, end: 20090101
  14. KEPPRA [Suspect]
     Indication: CONVULSION
     Dosage: 1750 MG 1/D PO
     Route: 048
     Dates: start: 20030701, end: 20090101
  15. KEPPRA [Suspect]
     Indication: CONVULSION
     Dosage: 750 MG 1/D PO
     Route: 048
     Dates: start: 20030701, end: 20090101
  16. KEPPRA [Suspect]
     Indication: CONVULSION
     Dosage: 1500 MG 1/D PO
     Route: 048
     Dates: start: 20090101, end: 20090702
  17. KEPPRA [Suspect]
     Indication: CONVULSION
     Dosage: 1000 MG 1/D PO
     Route: 048
     Dates: start: 20030101, end: 20090702
  18. KEPPRA [Suspect]
     Indication: CONVULSION
     Dosage: 1750 MG 1/D PO
     Route: 048
     Dates: start: 20090101, end: 20090702
  19. KEPPRA [Suspect]
     Indication: CONVULSION
     Dosage: 750 MG 1/D PO
     Route: 048
     Dates: start: 20090101, end: 20090702
  20. GABAPENTIN [Concomitant]
  21. ATIVAN [Concomitant]
  22. DIASTAT [Concomitant]

REACTIONS (9)
  - ABASIA [None]
  - COMPLEX PARTIAL SEIZURES [None]
  - DYSURIA [None]
  - EATING DISORDER [None]
  - MUSCLE TWITCHING [None]
  - MYOCLONUS [None]
  - PRODUCT QUALITY ISSUE [None]
  - SIMPLE PARTIAL SEIZURES [None]
  - WRONG TECHNIQUE IN DRUG USAGE PROCESS [None]
